FAERS Safety Report 8048282-1 (Version None)
Quarter: 2012Q1

REPORT INFORMATION
  Report Type: 
  Country: None (occurrence: None)
  Receive Date: 20120110
  Receipt Date: 20111230
  Transmission Date: 20120608
  Serious: Yes (Other)
  Sender: FDA-Public Use
  Company Number: DSA_48773_2012

PATIENT
  Sex: Female

DRUGS (1)
  1. BUPROPION HYDROCHLORIDE [Suspect]
     Indication: PRODUCT USED FOR UNKNOWN INDICATION
     Dosage: (300 MG, FREQUENCY UNKNOWN ORAL)
     Route: 048
     Dates: start: 20110101

REACTIONS (3)
  - HYPERSENSITIVITY [None]
  - PRODUCT SUBSTITUTION ISSUE [None]
  - APPARENT DEATH [None]
